FAERS Safety Report 25405521 (Version 1)
Quarter: 2025Q2

REPORT INFORMATION
  Report Type: Spontaneous
  Country: US (occurrence: US)
  Receive Date: 20250606
  Receipt Date: 20250606
  Transmission Date: 20250717
  Serious: No
  Sender: JOHNSON AND JOHNSON
  Company Number: US-JNJFOC-20250604729

PATIENT
  Age: 39 Year
  Sex: Female

DRUGS (1)
  1. SPRAVATO [Suspect]
     Active Substance: ESKETAMINE
     Indication: Depression
     Route: 045
     Dates: start: 20241001

REACTIONS (7)
  - Fatigue [Recovered/Resolved]
  - Hypersomnia [Recovered/Resolved]
  - Caffeine allergy [Recovered/Resolved]
  - Malaise [Recovered/Resolved]
  - Dissociation [Recovered/Resolved]
  - Somnolence [Recovered/Resolved]
  - Dysgeusia [Recovered/Resolved]

NARRATIVE: CASE EVENT DATE: 20241001
